FAERS Safety Report 9611563 (Version 1)
Quarter: 2013Q4

REPORT INFORMATION
  Report Type: Report from Study
  Country: US (occurrence: US)
  Receive Date: 20131010
  Receipt Date: 20131010
  Transmission Date: 20140711
  Serious: Yes (Other)
  Sender: FDA-Public Use
  Company Number: PHEH2013US020953

PATIENT
  Sex: Male

DRUGS (1)
  1. ILARIS [Suspect]
     Dosage: 150 MG, UNK

REACTIONS (4)
  - Thrombosis [Unknown]
  - Erythema [Unknown]
  - Local swelling [Unknown]
  - Oedema [Unknown]
